FAERS Safety Report 16891549 (Version 1)
Quarter: 2019Q4

REPORT INFORMATION
  Report Type: Spontaneous
  Country: US (occurrence: US)
  Receive Date: 20191007
  Receipt Date: 20191007
  Transmission Date: 20200122
  Serious: No
  Sender: FDA-Public Use
  Company Number: US-AMGEN-USASP2019160873

PATIENT
  Age: 50 Year

DRUGS (2)
  1. PARSABIV [Suspect]
     Active Substance: ETELCALCETIDE HYDROCHLORIDE
     Indication: HYPERPARATHYROIDISM SECONDARY
     Dosage: 10 MILLIGRAM, 3 TIMES/WK
     Route: 065
     Dates: start: 201903, end: 20190911
  2. HECTOROL [Concomitant]
     Active Substance: DOXERCALCIFEROL
     Dosage: 6 MICROGRAM

REACTIONS (1)
  - Low turnover osteopathy [Unknown]
